FAERS Safety Report 4287463-X (Version None)
Quarter: 2004Q1

REPORT INFORMATION
  Report Type: 
  Country: None (occurrence: None)
  Receive Date: 20040209
  Receipt Date: 20030702
  Transmission Date: 20041129
  Serious: No
  Sender: FDA-Public Use
  Company Number: US-GLAXOSMITHKLINE-A0414896A

PATIENT
  Sex: Male

DRUGS (1)
  1. PAXIL CR [Suspect]
     Route: 048

REACTIONS (2)
  - LIVER FUNCTION TEST ABNORMAL [None]
  - PALPITATIONS [None]
